FAERS Safety Report 9187568 (Version 3)
Quarter: 2013Q3

REPORT INFORMATION
  Report Type: Spontaneous
  Country: US (occurrence: US)
  Receive Date: 20130325
  Receipt Date: 20130719
  Transmission Date: 20140515
  Serious: Yes (Hospitalization, Other)
  Sender: FDA-Public Use
  Company Number: US-TARO-2013P1003563

PATIENT
  Age: 18 Year
  Sex: Female
  Weight: 67.59 kg

DRUGS (6)
  1. EPIDUO [Suspect]
     Indication: ACNE
     Route: 061
     Dates: start: 20130118
  2. RECLIPSEN [Concomitant]
     Route: 048
     Dates: start: 2010
  3. ADVAIR DISKUS [Concomitant]
     Route: 055
  4. OXCARBAZEPINE [Concomitant]
     Route: 048
  5. ALBUTEROL [Concomitant]
     Route: 055
  6. ADDERALL [Concomitant]
     Route: 048

REACTIONS (1)
  - Appendicitis [Recovered/Resolved]
